FAERS Safety Report 10019625 (Version 4)
Quarter: 2015Q3

REPORT INFORMATION
  Report Type: Spontaneous
  Country: US (occurrence: US)
  Receive Date: 20140318
  Receipt Date: 20150728
  Transmission Date: 20151125
  Serious: Yes (Other)
  Sender: FDA-Public Use
  Company Number: US-PFIZER INC-2014076727

PATIENT
  Age: 57 Year
  Sex: Female
  Weight: 85.26 kg

DRUGS (12)
  1. ALBUTEROL/IPRATROPIUM [Concomitant]
     Active Substance: ALBUTEROL\IPRATROPIUM
     Dosage: UNK
  2. IPRATROPIUM [Concomitant]
     Active Substance: IPRATROPIUM
     Dosage: UNK
  3. ALBUTEROL. [Concomitant]
     Active Substance: ALBUTEROL
     Dosage: UNK
  4. BENZONATATE. [Concomitant]
     Active Substance: BENZONATATE
     Dosage: UNK
  5. SPIRONOLACTONE. [Concomitant]
     Active Substance: SPIRONOLACTONE
     Dosage: UNK
  6. LYRICA [Suspect]
     Active Substance: PREGABALIN
     Indication: DIABETIC NEUROPATHY
     Dosage: 200 MG, 3X/DAY
     Route: 048
  7. ATORVASTATIN [Concomitant]
     Active Substance: ATORVASTATIN
     Dosage: UNK
  8. ATENOLOL. [Concomitant]
     Active Substance: ATENOLOL
     Dosage: UNK
  9. LYRICA [Suspect]
     Active Substance: PREGABALIN
     Dosage: 400 MG (TWO CAPSULES OF 200MG), 3X/DAY
     Route: 048
  10. LISINOPRIL. [Concomitant]
     Active Substance: LISINOPRIL
     Dosage: UNK
  11. ASPIRIN. [Concomitant]
     Active Substance: ASPIRIN
     Dosage: UNK
  12. HYDROCHLOROTHIAZIDE. [Concomitant]
     Active Substance: HYDROCHLOROTHIAZIDE
     Dosage: UNK

REACTIONS (12)
  - Disease progression [Unknown]
  - Muscle spasms [Unknown]
  - Neoplasm malignant [Unknown]
  - Peripheral swelling [Unknown]
  - Coronary artery occlusion [Unknown]
  - Peripheral arterial occlusive disease [Unknown]
  - Abasia [Unknown]
  - Cardiac disorder [Unknown]
  - Lung disorder [Unknown]
  - Diabetic neuropathy [Unknown]
  - Pain in extremity [Unknown]
  - Cardiomyopathy [Unknown]
